FAERS Safety Report 17230565 (Version 1)
Quarter: 2020Q1

REPORT INFORMATION
  Report Type: Spontaneous
  Country: CA (occurrence: CA)
  Receive Date: 20200103
  Receipt Date: 20200103
  Transmission Date: 20200409
  Serious: Yes (Other)
  Sender: FDA-Public Use
  Company Number: CA-ABBVIE-20K-028-3218577-00

PATIENT
  Sex: Male

DRUGS (4)
  1. HUMIRA [Suspect]
     Active Substance: ADALIMUMAB
     Indication: RHEUMATOID ARTHRITIS
     Route: 058
  2. RITUXIMAB. [Suspect]
     Active Substance: RITUXIMAB
     Indication: PRODUCT USED FOR UNKNOWN INDICATION
     Route: 042
  3. METHOTREXATE. [Concomitant]
     Active Substance: METHOTREXATE
     Indication: ARTHRITIS
     Route: 048
  4. PREDNISONE. [Suspect]
     Active Substance: PREDNISONE
     Indication: PAIN
     Route: 065

REACTIONS (9)
  - Drug ineffective [Unknown]
  - Vascular graft [Unknown]
  - Arthralgia [Unknown]
  - Musculoskeletal pain [Unknown]
  - Surgical failure [Unknown]
  - Loss of personal independence in daily activities [Unknown]
  - Peripheral artery aneurysm [Unknown]
  - Skin atrophy [Unknown]
  - Pain in extremity [Unknown]
